FAERS Safety Report 13964912 (Version 1)
Quarter: 2017Q3

REPORT INFORMATION
  Report Type: Spontaneous
  Country: US (occurrence: US)
  Receive Date: 20170913
  Receipt Date: 20170913
  Transmission Date: 20171128
  Serious: Yes (Other)
  Sender: FDA-Public Use
  Company Number: US-JNJFOC-20170706703

PATIENT
  Age: 79 Year
  Sex: Male
  Weight: 88.45 kg

DRUGS (5)
  1. ZOMETA [Concomitant]
     Active Substance: ZOLEDRONIC ACID
     Route: 042
     Dates: start: 20140429
  2. OXYCODONE [Concomitant]
     Active Substance: OXYCODONE
     Indication: BACK PAIN
     Route: 065
  3. ZYTIGA [Suspect]
     Active Substance: ABIRATERONE ACETATE
     Indication: PROSTATE CANCER METASTATIC
     Route: 048
     Dates: start: 20140429
  4. PREDNISONE. [Concomitant]
     Active Substance: PREDNISONE
     Indication: PROSTATE CANCER METASTATIC
     Route: 048
     Dates: start: 20140429
  5. LUPRON [Concomitant]
     Active Substance: LEUPROLIDE ACETATE
     Route: 030
     Dates: start: 20140429

REACTIONS (8)
  - Dyspepsia [Unknown]
  - Back pain [Unknown]
  - Depression [Unknown]
  - Right ventricular failure [Unknown]
  - Paraesthesia [Unknown]
  - Pain [Unknown]
  - Intermittent claudication [Unknown]
  - Chills [Unknown]
